FAERS Safety Report 8760945 (Version 1)
Quarter: 2012Q4

REPORT INFORMATION
  Report Type: 
  Country: CO (occurrence: CO)
  Receive Date: 20120830
  Receipt Date: 20120830
  Transmission Date: 20130627
  Serious: Yes (Death, Hospitalization)
  Sender: FDA-Public Use
  Company Number: PHHY2012CO074736

PATIENT
  Age: 78 Year
  Sex: Male

DRUGS (1)
  1. EXJADE [Suspect]
     Indication: IRON OVERLOAD
     Dosage: 500 mg, UNK
     Route: 048
     Dates: start: 201207

REACTIONS (2)
  - Death [Fatal]
  - Pulmonary oedema [Unknown]
